FAERS Safety Report 4458645-9 (Version None)
Quarter: 2004Q3

REPORT INFORMATION
  Report Type: 
  Country: None (occurrence: None)
  Receive Date: 20040917
  Receipt Date: 20040217
  Transmission Date: 20050211
  Serious: Yes (Hospitalization)
  Sender: FDA-Public Use
  Company Number: US-JNJFOC-20030604673

PATIENT
  Age: 19 Year
  Sex: Female

DRUGS (2)
  1. TOPAMAX [Suspect]
     Indication: CATATONIA
     Dosage: 200 MG ; 150 MG  : IN 1 DAY, ORAL
     Route: 048
  2. CLOZAPINE [Concomitant]

REACTIONS (2)
  - SUICIDE ATTEMPT [None]
  - UNEXPECTED THERAPEUTIC DRUG EFFECT [None]
